FAERS Safety Report 10540198 (Version 2)
Quarter: 2014Q4

REPORT INFORMATION
  Report Type: Spontaneous
  Country: CH (occurrence: CH)
  Receive Date: 20141024
  Receipt Date: 20141029
  Transmission Date: 20150529
  Serious: Yes (Other)
  Sender: FDA-Public Use
  Company Number: CH-ASTRAZENECA-2014SE78489

PATIENT
  Age: 8292 Day
  Sex: Female

DRUGS (7)
  1. ESOMEP [Suspect]
     Active Substance: ESOMEPRAZOLE
     Indication: GASTROINTESTINAL ULCER
     Route: 040
  2. TAVANIC [Suspect]
     Active Substance: LEVOFLOXACIN
     Indication: ANTIBIOTIC THERAPY
     Route: 040
     Dates: start: 20140813, end: 20140819
  3. DIFLUCAN [Suspect]
     Active Substance: FLUCONAZOLE
     Route: 065
     Dates: start: 20140814, end: 20140817
  4. ESOMEP [Suspect]
     Active Substance: ESOMEPRAZOLE
     Indication: GASTROINTESTINAL ULCER
     Route: 040
     Dates: start: 20140727
  5. CANCIDAS [Suspect]
     Active Substance: CASPOFUNGIN ACETATE
     Route: 065
     Dates: start: 20140813, end: 20140814
  6. AUGMENTIN [Suspect]
     Active Substance: AMOXICILLIN\CLAVULANATE POTASSIUM
     Indication: ANTIBIOTIC THERAPY
     Route: 040
     Dates: start: 20140727, end: 20140802
  7. ESOMEPRAZOLE [Suspect]
     Active Substance: ESOMEPRAZOLE
     Route: 048
     Dates: start: 20140806

REACTIONS (2)
  - Transaminases increased [Recovered/Resolved]
  - Liver disorder [Recovered/Resolved]

NARRATIVE: CASE EVENT DATE: 20140727
